FAERS Safety Report 19686557 (Version 1)
Quarter: 2021Q3

REPORT INFORMATION
  Report Type: Report from Study
  Country: BG (occurrence: BG)
  Receive Date: 20210811
  Receipt Date: 20210811
  Transmission Date: 20211014
  Serious: Yes (Death, Other)
  Sender: FDA-Public Use
  Company Number: BG-TAKEDA-2021TUS049782

PATIENT
  Age: 17 Year
  Sex: Male

DRUGS (1)
  1. IDURSULFASE [Suspect]
     Active Substance: IDURSULFASE
     Indication: MUCOPOLYSACCHARIDOSIS II
     Dosage: 10 FL, UNK
     Route: 042
     Dates: start: 201209

REACTIONS (1)
  - Death [Fatal]

NARRATIVE: CASE EVENT DATE: 20210806
